FAERS Safety Report 9174288 (Version 1)
Quarter: 2013Q1

REPORT INFORMATION
  Report Type: Spontaneous
  Country: IT (occurrence: None)
  Receive Date: 20130318
  Receipt Date: 20130318
  Transmission Date: 20140127
  Serious: Yes (Other)
  Sender: FDA-Public Use
  Company Number: 1632652

PATIENT
  Age: 63 Year
  Sex: Male

DRUGS (5)
  1. DOCETAXEL [Suspect]
     Indication: LUNG CARCINOMA CELL TYPE UNSPECIFIED STAGE IV
     Route: 042
     Dates: start: 20130208, end: 20130301
  2. PANTOPRAZOLE [Concomitant]
  3. TRIMETON [Concomitant]
  4. PLASIL [Concomitant]
  5. DEXAMETHASONE [Concomitant]

REACTIONS (3)
  - Feeling hot [None]
  - Erythema [None]
  - Flushing [None]
